FAERS Safety Report 15377163 (Version 1)
Quarter: 2018Q3

REPORT INFORMATION
  Report Type: Report from Study
  Country: ES (occurrence: ES)
  Receive Date: 20180913
  Receipt Date: 20180913
  Transmission Date: 20181010
  Serious: Yes (Hospitalization)
  Sender: FDA-Public Use
  Company Number: ES-ROCHE-2182731

PATIENT
  Age: 64 Year
  Sex: Female

DRUGS (12)
  1. CARBOPLATIN. [Suspect]
     Active Substance: CARBOPLATIN
     Indication: OVARIAN CANCER
     Route: 042
     Dates: start: 20180813
  2. OMEPRAZOLE. [Concomitant]
     Active Substance: OMEPRAZOLE
  3. EUTHYROX [Concomitant]
     Active Substance: LEVOTHYROXINE SODIUM
     Route: 065
     Dates: start: 1998
  4. DULOXETINA [Concomitant]
     Active Substance: DULOXETINE
     Route: 065
     Dates: start: 1998
  5. TRAMADOL. [Concomitant]
     Active Substance: TRAMADOL
  6. AMITRIPTYLINE [Concomitant]
     Active Substance: AMITRIPTYLINE
     Route: 065
     Dates: start: 1998
  7. BEVACIZUMAB. [Suspect]
     Active Substance: BEVACIZUMAB
     Indication: OVARIAN CANCER
     Route: 042
     Dates: start: 20180813
  8. PARACETAMOL [Concomitant]
     Active Substance: ACETAMINOPHEN
  9. BLINDED ATEZOLIZUMAB [Suspect]
     Active Substance: ATEZOLIZUMAB
     Indication: OVARIAN CANCER
     Route: 042
     Dates: start: 20180813
  10. HIDROSALUTERIL [Concomitant]
  11. PEGYLATED LIPOSOMAL DOXORUBICIN [Suspect]
     Active Substance: DOXORUBICIN
     Indication: OVARIAN CANCER
     Route: 042
     Dates: start: 20180813
  12. BROMAZEPAN [Concomitant]
     Active Substance: BROMAZEPAM

REACTIONS (2)
  - Infusion related reaction [Recovered/Resolved]
  - Allergy test positive [Unknown]

NARRATIVE: CASE EVENT DATE: 20180813
